FAERS Safety Report 6345962-0 (Version None)
Quarter: 2009Q3

REPORT INFORMATION
  Report Type: 
  Country: None (occurrence: None)
  Receive Date: 20090909
  Receipt Date: 20090827
  Transmission Date: 20100115
  Serious: Yes (Other)
  Sender: FDA-Public Use
  Company Number: TR-TYCO HEALTHCARE/MALLINCKRODT-T200901659

PATIENT

DRUGS (3)
  1. OPTIRAY 350 [Suspect]
     Indication: ARTERIOGRAM CORONARY
     Dosage: UNK
     Route: 042
  2. SODIUM CHLORIDE [Suspect]
     Indication: PROPHYLAXIS AGAINST DEHYDRATION
     Dosage: 12 HOURS BEFORE AND AFTER CONTRAST EXPSOSURE
     Route: 042
  3. NAC                                /00082801/ [Suspect]
     Indication: PROPHYLAXIS
     Dosage: 600 MG, BID FOR THE PRECEDING DAY AND THE DAY OF ANGIOGRAPHY
     Route: 048

REACTIONS (1)
  - NEPHROPATHY TOXIC [None]
